FAERS Safety Report 7228225-0 (Version None)
Quarter: 2011Q1

REPORT INFORMATION
  Report Type: 
  Country: None (occurrence: None)
  Receive Date: 20110114
  Receipt Date: 20110106
  Transmission Date: 20110831
  Serious: Yes (Other)
  Sender: FDA-Public Use
  Company Number: JP-ASTRAZENECA-2011SE01278

PATIENT
  Sex: Male

DRUGS (2)
  1. LEUPLIN [Concomitant]
     Indication: PROSTATE CANCER
     Dosage: DOSE UNKNOWN
     Route: 058
  2. CASODEX [Suspect]
     Indication: PROSTATE CANCER
     Route: 048

REACTIONS (1)
  - NEUTROPHIL COUNT DECREASED [None]
